FAERS Safety Report 9299266 (Version 3)
Quarter: 2013Q2

REPORT INFORMATION
  Report Type: Spontaneous
  Country: US (occurrence: US)
  Receive Date: 20130520
  Receipt Date: 20130614
  Transmission Date: 20140414
  Serious: Yes (Other)
  Sender: FDA-Public Use
  Company Number: US-ASTRAZENECA-2013SE32169

PATIENT
  Age: 71 Year
  Sex: Male
  Weight: 72.1 kg

DRUGS (10)
  1. ZESTRIL [Suspect]
     Dosage: HALF TABLET TWO TIMES DAILY
     Route: 048
  2. LOPRESSOR [Suspect]
     Dosage: HALF TABLET TWO TIMES DAILY, 10-12 HOURS APART
     Route: 048
  3. CRESTOR [Suspect]
     Indication: LOW DENSITY LIPOPROTEIN INCREASED
     Route: 048
     Dates: start: 201207
  4. ECOTRIN [Concomitant]
     Route: 048
  5. COQ10 [Concomitant]
     Dosage: 100 UNITS
  6. SIMVASTATIN [Concomitant]
  7. NAFTIN [Concomitant]
     Dosage: AS NEEDED
  8. VITAMIN D [Concomitant]
     Dosage: 1000 UNITS, DAILY
     Route: 048
  9. NITROSTAT [Concomitant]
     Dosage: 1 TABLET, EVERY 5 MINUTES, AS NEEDED
     Route: 060
  10. METAMUCIL [Concomitant]
     Dosage: 1 TSP, AS NEEDED
     Route: 048

REACTIONS (16)
  - Coronary artery disease [Unknown]
  - Electrocardiogram ST segment elevation [Unknown]
  - Ventricular tachycardia [Unknown]
  - Activities of daily living impaired [Unknown]
  - Pain [Unknown]
  - Ventricular arrhythmia [Unknown]
  - Blood pressure increased [Unknown]
  - Muscle spasms [Unknown]
  - Musculoskeletal pain [Unknown]
  - Pain in extremity [Unknown]
  - Nodal arrhythmia [Unknown]
  - Myalgia [Unknown]
  - Burning sensation [Unknown]
  - Palpitations [Unknown]
  - Tachyarrhythmia [Unknown]
  - Arthralgia [Unknown]
